FAERS Safety Report 5395364-9 (Version None)
Quarter: 2007Q3

REPORT INFORMATION
  Report Type: 
  Country: None (occurrence: None)
  Receive Date: 20070724
  Receipt Date: 20070719
  Transmission Date: 20080115
  Serious: Yes (Hospitalization)
  Sender: FDA-Public Use
  Company Number: US-MERCK-0707USA03321

PATIENT
  Age: 58 Year
  Sex: Female

DRUGS (5)
  1. VYTORIN [Suspect]
     Indication: BLOOD CHOLESTEROL
     Route: 048
     Dates: start: 20070501
  2. BENICAR [Concomitant]
     Route: 065
  3. ASPIRIN [Concomitant]
     Route: 065
  4. OMEGA-3 MARINE TRIGLYCERIDES [Concomitant]
     Route: 065
  5. CALCIUM (UNSPECIFIED) [Concomitant]
     Route: 065

REACTIONS (7)
  - ANAEMIA [None]
  - CONTUSION [None]
  - DRUG ADMINISTRATION ERROR [None]
  - FATIGUE [None]
  - NEUTROPENIA [None]
  - PALPITATIONS [None]
  - THROMBOCYTOPENIA [None]
